FAERS Safety Report 7232107-8 (Version None)
Quarter: 2011Q1

REPORT INFORMATION
  Report Type: 
  Country: None (occurrence: None)
  Receive Date: 20110119
  Receipt Date: 20110111
  Transmission Date: 20110831
  Serious: Yes (Other)
  Sender: FDA-Public Use
  Company Number: GB-AMGEN-GBRSP2011002623

PATIENT

DRUGS (7)
  1. ARAVA [Concomitant]
     Dosage: 10 MG, UNK
     Route: 048
  2. TRAMADOL [Concomitant]
     Dosage: 100 MG, UNK
     Route: 048
     Dates: start: 20090302
  3. PREDNISOLONE [Concomitant]
     Dosage: 15 MG, UNK
     Route: 048
     Dates: start: 20100928
  4. ENBREL [Suspect]
     Indication: PSORIATIC ARTHROPATHY
     Dosage: 50 MG, UNK
     Route: 058
     Dates: start: 20101111, end: 20101122
  5. ENBREL [Suspect]
  6. PARACETAMOL [Concomitant]
     Dosage: UNK
     Route: 048
  7. GABAPENTIN [Concomitant]
     Dosage: 300 MG, UNK
     Route: 048
     Dates: start: 20100916

REACTIONS (2)
  - LIP SWELLING [None]
  - RASH PRURITIC [None]
